FAERS Safety Report 8675991 (Version 2)
Quarter: 2012Q4

REPORT INFORMATION
  Report Type: 
  Country: NZ (occurrence: NZ)
  Receive Date: 20120720
  Receipt Date: 20120920
  Transmission Date: 20130627
  Serious: Yes (Death)
  Sender: FDA-Public Use
  Company Number: PHHY2012NZ061937

PATIENT
  Age: 72 Year
  Sex: Male

DRUGS (10)
  1. CLOZARIL [Suspect]
     Indication: SCHIZOPHRENIA
     Route: 048
     Dates: start: 20100410
  2. CLOZARIL [Suspect]
     Dosage: 25 mg tablet two nocte.
     Route: 048
     Dates: start: 20120326
  3. OMEPRAZOLE [Concomitant]
     Dosage: 1 capsule once daily.
  4. MADOPAR 62.5 [Concomitant]
     Dosage: 1 three times per day and at 10 pm nocte (4 tablets daily now)
  5. PREDNISONE [Concomitant]
     Dosage: 1 mg tablet, two daily.
     Route: 048
  6. PREDNISONE [Concomitant]
     Dosage: 5 mg tablet, one daily after meals.
     Route: 048
  7. COLECALCIFEROL [Concomitant]
     Indication: BONE DISORDER
     Dosage: 1.25 mg (one tablet each month indefinitely)
  8. ASPIRIN [Concomitant]
     Dosage: 100 mg , one mane after meal
     Route: 048
  9. METHOTREXATE [Concomitant]
     Dosage: 2.5 mg, three one a week
  10. FOLIC ACID [Concomitant]
     Dosage: 1 DF, weekly
     Route: 048

REACTIONS (1)
  - Death [Fatal]
